FAERS Safety Report 16570602 (Version 5)
Quarter: 2021Q2

REPORT INFORMATION
  Report Type: Report from Study
  Country: IN (occurrence: IN)
  Receive Date: 20190715
  Receipt Date: 20210429
  Transmission Date: 20210716
  Serious: Yes (Life-Threatening, Hospitalization, Other)
  Sender: FDA-Public Use
  Company Number: IN-CIPLA LTD.-2019IN05001

PATIENT

DRUGS (8)
  1. ZERODOL SP [Concomitant]
     Indication: ANTIINFLAMMATORY THERAPY
     Dosage: 100/15 MG, BID
     Route: 048
     Dates: start: 20190422
  2. METOSARTAN [Concomitant]
     Indication: BLOOD PRESSURE ABNORMAL
     Dosage: 1 DOSAGE FORM, QD
     Route: 048
     Dates: start: 20190426, end: 20190525
  3. PANTOCID DSR [Concomitant]
     Indication: HYPERCHLORHYDRIA
     Dosage: 1 DOSAGE FORM, QD
     Route: 048
     Dates: start: 20190525, end: 20190606
  4. STAMLO [Concomitant]
     Active Substance: AMLODIPINE BESYLATE
     Indication: BLOOD PRESSURE ABNORMAL
     Dosage: 5 MILLIGRAM, QD
     Route: 048
     Dates: start: 20190426, end: 20190525
  5. TAFERO EM [Concomitant]
     Indication: HIV INFECTION
     Dosage: 1 DOSAGE FORM, QD
     Route: 048
     Dates: start: 20190422
  6. CTD T [Concomitant]
     Indication: BLOOD PRESSURE ABNORMAL
     Dosage: 1 DOSAGE FORM, QD
     Route: 048
     Dates: start: 20190426, end: 20190525
  7. DARUNAVIR [Suspect]
     Active Substance: DARUNAVIR
     Indication: HIV INFECTION
     Dosage: 800 MILLIGRAM, QD
     Route: 048
     Dates: start: 20190422, end: 20191010
  8. RITONAVIR. [Suspect]
     Active Substance: RITONAVIR
     Indication: HIV INFECTION
     Dosage: 100 MILLIGRAM, QD
     Route: 048
     Dates: start: 20190422

REACTIONS (12)
  - Cerebral infarction [Recovered/Resolved]
  - Eosinophil count decreased [Unknown]
  - Dyslipidaemia [Unknown]
  - Disease progression [Unknown]
  - Chest pain [Unknown]
  - High density lipoprotein decreased [Unknown]
  - White blood cell count decreased [Unknown]
  - Haemoglobin decreased [Unknown]
  - Hypertension [Unknown]
  - Hypertriglyceridaemia [Unknown]
  - Red blood cell count decreased [Unknown]
  - Blood uric acid increased [Unknown]

NARRATIVE: CASE EVENT DATE: 20190625
